FAERS Safety Report 8329456-9 (Version None)
Quarter: 2012Q2

REPORT INFORMATION
  Report Type: 
  Country: None (occurrence: None)
  Receive Date: 20120502
  Receipt Date: 20120419
  Transmission Date: 20120825
  Serious: Yes (Hospitalization)
  Sender: FDA-Public Use
  Company Number: CA-ROCHE-1047135

PATIENT
  Sex: Female
  Weight: 76.8 kg

DRUGS (3)
  1. RANIBIZUMAB [Suspect]
     Dosage: LAST DOSE PRIOR TO SAE: 29/AUG/2011
     Route: 050
     Dates: start: 20110804, end: 20110930
  2. ROSIGLITAZONE MALEATE [Suspect]
     Indication: DIABETES MELLITUS
     Route: 048
     Dates: start: 20070401, end: 20120110
  3. RANIBIZUMAB [Suspect]
     Indication: DIABETIC RETINAL OEDEMA
     Dosage: DOSE UNKNOWN
     Route: 050
     Dates: start: 20090108, end: 20090413

REACTIONS (1)
  - TRANSIENT ISCHAEMIC ATTACK [None]
